FAERS Safety Report 10643086 (Version 1)
Quarter: 2014Q4

REPORT INFORMATION
  Report Type: Spontaneous
  Country: US (occurrence: None)
  Receive Date: 20141209
  Receipt Date: 20141209
  Transmission Date: 20150529
  Serious: Yes (Death)
  Sender: FDA-Public Use
  Company Number: None

PATIENT
  Age: 62 Year
  Sex: Male

DRUGS (1)
  1. EPOGEN [Suspect]
     Active Substance: ERYTHROPOIETIN
     Indication: LIVER DISORDER
     Route: 058
     Dates: start: 20140712, end: 201411

REACTIONS (1)
  - Death [None]

NARRATIVE: CASE EVENT DATE: 20141202
